FAERS Safety Report 4771503-5 (Version None)
Quarter: 2005Q3

REPORT INFORMATION
  Report Type: 
  Country: None (occurrence: None)
  Receive Date: 20050914
  Receipt Date: 20050914
  Transmission Date: 20060218
  Serious: Yes (Hospitalization)
  Sender: FDA-Public Use
  Company Number: None

PATIENT
  Age: 46 Year
  Sex: Male
  Weight: 88.4514 kg

DRUGS (2)
  1. CIALIS [Suspect]
     Indication: ERECTILE DYSFUNCTION
     Dosage: PO PRN
     Route: 048
     Dates: start: 20050811, end: 20050811
  2. LOTREL [Concomitant]

REACTIONS (4)
  - APHASIA [None]
  - DYSPHAGIA [None]
  - HAEMORRHAGIC STROKE [None]
  - HEADACHE [None]
